FAERS Safety Report 9931763 (Version 1)
Quarter: 2014Q1

REPORT INFORMATION
  Report Type: Spontaneous
  Country: US (occurrence: None)
  Receive Date: 20140227
  Receipt Date: 20140227
  Transmission Date: 20141002
  Serious: Yes (Disabling)
  Sender: FDA-Public Use
  Company Number: None

PATIENT
  Age: 42 Year
  Sex: Female
  Weight: 97.52 kg

DRUGS (2)
  1. LEVOFLOXACIN [Suspect]
     Indication: ASTHMA
     Dosage: 1 PILL ONCE DAILY
     Route: 048
     Dates: start: 20140123, end: 20140201
  2. LEVOFLOXACIN [Suspect]
     Indication: UPPER RESPIRATORY TRACT INFECTION
     Dosage: 1 PILL ONCE DAILY
     Route: 048
     Dates: start: 20140123, end: 20140201

REACTIONS (4)
  - Arthralgia [None]
  - Gait disturbance [None]
  - Screaming [None]
  - Condition aggravated [None]
